FAERS Safety Report 22214979 (Version 2)
Quarter: 2023Q2

REPORT INFORMATION
  Report Type: Spontaneous
  Country: RU (occurrence: RU)
  Receive Date: 20230415
  Receipt Date: 20230426
  Transmission Date: 20230722
  Serious: Yes (Other)
  Sender: FDA-Public Use
  Company Number: RU-002147023-NVSC2023RU084902

PATIENT
  Age: 38 Year
  Sex: Male

DRUGS (5)
  1. SIPONIMOD [Suspect]
     Active Substance: SIPONIMOD
     Indication: Secondary progressive multiple sclerosis
     Dosage: 0.25 MG (1ST AND 2ND DAY)
     Route: 048
     Dates: start: 20230328
  2. SIPONIMOD [Suspect]
     Active Substance: SIPONIMOD
     Dosage: 0.5 MG (3RD DAY)
     Route: 048
  3. SIPONIMOD [Suspect]
     Active Substance: SIPONIMOD
     Dosage: 0.75 MG (4TH DAY)
     Route: 048
  4. SIPONIMOD [Suspect]
     Active Substance: SIPONIMOD
     Dosage: 1.25 MG (5TH DAY)
     Route: 048
  5. SIPONIMOD [Suspect]
     Active Substance: SIPONIMOD
     Dosage: 2 MG
     Route: 048

REACTIONS (7)
  - Urinary retention [Unknown]
  - Paraesthesia [Unknown]
  - Diplopia [Unknown]
  - Visual impairment [Unknown]
  - Tremor [Unknown]
  - Dizziness [Recovering/Resolving]
  - Gait disturbance [Recovering/Resolving]

NARRATIVE: CASE EVENT DATE: 20230402
